FAERS Safety Report 7617702-6 (Version None)
Quarter: 2011Q3

REPORT INFORMATION
  Report Type: 
  Country: None (occurrence: None)
  Receive Date: 20110718
  Receipt Date: 20110704
  Transmission Date: 20111222
  Serious: Yes (Other)
  Sender: FDA-Public Use
  Company Number: PHHY2011US60140

PATIENT
  Age: 47 Year
  Sex: Female

DRUGS (2)
  1. CLOZAPINE [Interacting]
     Dosage: 700 MG, DAILY
  2. ARIPIPRAZOLE [Suspect]
     Dosage: 15 MG, UNK

REACTIONS (5)
  - DRUG INTERACTION [None]
  - ANTIPSYCHOTIC DRUG LEVEL INCREASED [None]
  - FEELING ABNORMAL [None]
  - DELUSION [None]
  - HALLUCINATION, AUDITORY [None]
